FAERS Safety Report 23300556 (Version 4)
Quarter: 2024Q2

REPORT INFORMATION
  Report Type: Spontaneous
  Country: JP (occurrence: JP)
  Receive Date: 20231215
  Receipt Date: 20240509
  Transmission Date: 20240716
  Serious: Yes (Death, Hospitalization, Other)
  Sender: FDA-Public Use
  Company Number: JP-DAIICHI SANKYO, INC.-DSJ-2023-151711

PATIENT
  Age: 82 Year
  Sex: Male
  Weight: 63.4 kg

DRUGS (44)
  1. ENHERTU [Suspect]
     Active Substance: FAM-TRASTUZUMAB DERUXTECAN-NXKI
     Indication: HER2 positive gastric cancer
     Dosage: 4.4 MG, ONCE EVERY 3 WK
     Route: 041
     Dates: start: 20220526, end: 20220526
  2. ENHERTU [Suspect]
     Active Substance: FAM-TRASTUZUMAB DERUXTECAN-NXKI
     Dosage: 4.4 MG, ONCE EVERY 3 WK
     Route: 041
     Dates: start: 20220616, end: 20220616
  3. ENHERTU [Suspect]
     Active Substance: FAM-TRASTUZUMAB DERUXTECAN-NXKI
     Dosage: 4.4 MG, ONCE EVERY 3 WK
     Route: 041
     Dates: start: 20220707, end: 20220707
  4. ENHERTU [Suspect]
     Active Substance: FAM-TRASTUZUMAB DERUXTECAN-NXKI
     Dosage: 4.4 MG, ONCE EVERY 3 WK
     Route: 041
     Dates: start: 20220728, end: 20220728
  5. ENHERTU [Suspect]
     Active Substance: FAM-TRASTUZUMAB DERUXTECAN-NXKI
     Dosage: 4.4 MG, ONCE EVERY 3 WK
     Route: 041
     Dates: start: 20220818, end: 20220818
  6. ENHERTU [Suspect]
     Active Substance: FAM-TRASTUZUMAB DERUXTECAN-NXKI
     Dosage: 4.4 MG, ONCE EVERY 3 WK
     Route: 041
     Dates: start: 20220908, end: 20220908
  7. ENHERTU [Suspect]
     Active Substance: FAM-TRASTUZUMAB DERUXTECAN-NXKI
     Dosage: 4.4 MG, ONCE EVERY 3 WK
     Route: 041
     Dates: start: 20220929, end: 20220929
  8. ENHERTU [Suspect]
     Active Substance: FAM-TRASTUZUMAB DERUXTECAN-NXKI
     Dosage: 4.4 MG, ONCE EVERY 3 WK
     Route: 041
     Dates: start: 20221020, end: 20221020
  9. ENHERTU [Suspect]
     Active Substance: FAM-TRASTUZUMAB DERUXTECAN-NXKI
     Dosage: 4.4 MG, ONCE EVERY 3 WK
     Route: 041
     Dates: start: 20221110, end: 20221110
  10. ENHERTU [Suspect]
     Active Substance: FAM-TRASTUZUMAB DERUXTECAN-NXKI
     Dosage: 4.4 MG, ONCE EVERY 3 WK
     Route: 041
     Dates: start: 20221201, end: 20221201
  11. ENHERTU [Suspect]
     Active Substance: FAM-TRASTUZUMAB DERUXTECAN-NXKI
     Dosage: 4.4 MG, ONCE EVERY 3 WK
     Route: 041
     Dates: start: 20221222, end: 20221222
  12. ENHERTU [Suspect]
     Active Substance: FAM-TRASTUZUMAB DERUXTECAN-NXKI
     Dosage: 4.4 MG, ONCE EVERY 3 WK
     Route: 041
     Dates: start: 20230112, end: 20230112
  13. ENHERTU [Suspect]
     Active Substance: FAM-TRASTUZUMAB DERUXTECAN-NXKI
     Dosage: 4.4 MG, ONCE EVERY 3 WK
     Route: 041
     Dates: start: 20230202, end: 20230202
  14. ENHERTU [Suspect]
     Active Substance: FAM-TRASTUZUMAB DERUXTECAN-NXKI
     Dosage: 4.4 MG, ONCE EVERY 3 WK
     Route: 041
     Dates: start: 20230302, end: 20230302
  15. ENHERTU [Suspect]
     Active Substance: FAM-TRASTUZUMAB DERUXTECAN-NXKI
     Dosage: 4.4 MG, ONCE EVERY 3 WK
     Route: 041
     Dates: start: 20230323, end: 20230323
  16. ENHERTU [Suspect]
     Active Substance: FAM-TRASTUZUMAB DERUXTECAN-NXKI
     Dosage: 4.4 MG, ONCE EVERY 3 WK
     Route: 041
     Dates: start: 20230413, end: 20230413
  17. ENHERTU [Suspect]
     Active Substance: FAM-TRASTUZUMAB DERUXTECAN-NXKI
     Dosage: 4.4 MG, ONCE EVERY 3 WK
     Route: 041
     Dates: start: 20230511, end: 20230511
  18. ENHERTU [Suspect]
     Active Substance: FAM-TRASTUZUMAB DERUXTECAN-NXKI
     Dosage: 4.4 MG, ONCE EVERY 3 WK
     Route: 041
     Dates: start: 20230601, end: 20230601
  19. ENHERTU [Suspect]
     Active Substance: FAM-TRASTUZUMAB DERUXTECAN-NXKI
     Dosage: 4.4 MG, ONCE EVERY 3 WK
     Route: 041
     Dates: start: 20230622, end: 20230622
  20. ENHERTU [Suspect]
     Active Substance: FAM-TRASTUZUMAB DERUXTECAN-NXKI
     Dosage: 4.4 MG, ONCE EVERY 3 WK
     Route: 041
     Dates: start: 20230713, end: 20230713
  21. ENHERTU [Suspect]
     Active Substance: FAM-TRASTUZUMAB DERUXTECAN-NXKI
     Dosage: 4.4 MG, ONCE EVERY 3 WK
     Route: 041
     Dates: start: 20230803, end: 20230803
  22. ENHERTU [Suspect]
     Active Substance: FAM-TRASTUZUMAB DERUXTECAN-NXKI
     Dosage: 4.4 MG, ONCE EVERY 3 WK
     Route: 041
     Dates: start: 20230824, end: 20230824
  23. ENHERTU [Suspect]
     Active Substance: FAM-TRASTUZUMAB DERUXTECAN-NXKI
     Dosage: 4.4 MG, ONCE EVERY 3 WK
     Route: 041
     Dates: start: 20230914, end: 20230914
  24. ENHERTU [Suspect]
     Active Substance: FAM-TRASTUZUMAB DERUXTECAN-NXKI
     Dosage: 4.4 MG, ONCE EVERY 3 WK
     Route: 041
     Dates: start: 20231005, end: 20231005
  25. ENHERTU [Suspect]
     Active Substance: FAM-TRASTUZUMAB DERUXTECAN-NXKI
     Dosage: 4.4 MG, ONCE EVERY 3 WK
     Route: 041
     Dates: start: 20231026, end: 20231026
  26. ENHERTU [Suspect]
     Active Substance: FAM-TRASTUZUMAB DERUXTECAN-NXKI
     Dosage: 4.4 MG, ONCE EVERY 3 WK
     Route: 041
     Dates: start: 20231116, end: 20231116
  27. PALONOSETRON [Concomitant]
     Active Substance: PALONOSETRON
     Indication: Prophylaxis of nausea and vomiting
     Dosage: 0.75 MG
     Route: 041
     Dates: start: 20220526, end: 20231116
  28. DEXAMETHASONE SODIUM PHOSPHATE [Concomitant]
     Active Substance: DEXAMETHASONE PHOSPHATE\DEXAMETHASONE SODIUM PHOSPHATE
     Indication: Prophylaxis of nausea and vomiting
     Dosage: 6.6 MG
     Route: 041
     Dates: start: 20220526, end: 20231116
  29. MAGNESIUM OXIDE [Concomitant]
     Active Substance: MAGNESIUM OXIDE
     Indication: Constipation prophylaxis
     Dosage: 330-660MG
     Route: 048
     Dates: start: 20220527
  30. AMITIZA [Concomitant]
     Active Substance: LUBIPROSTONE
     Indication: Constipation prophylaxis
     Dosage: 48 UG, AS NEEDED
     Route: 048
     Dates: start: 20220528, end: 20220831
  31. FUROSEMIDE [Concomitant]
     Active Substance: FUROSEMIDE
     Indication: Hypertension
     Dosage: 20 UG, QD
     Route: 048
  32. FUROSEMIDE [Concomitant]
     Active Substance: FUROSEMIDE
     Dosage: UNK UNK, QD
     Route: 048
  33. TRICHLORMETHIAZIDE [Concomitant]
     Active Substance: TRICHLORMETHIAZIDE
     Indication: Hypertension
     Dosage: 2 MG, QD
     Route: 048
  34. IMIDAPRIL HYDROCHLORIDE [Concomitant]
     Active Substance: IMIDAPRIL HYDROCHLORIDE
     Indication: Hypertension
     Dosage: 5 MG, QD
     Route: 048
  35. DILTIAZEM HYDROCHLORIDE [Concomitant]
     Active Substance: DILTIAZEM HYDROCHLORIDE
     Indication: Angina pectoris
     Dosage: 100 MG, BID
     Route: 048
  36. DILTIAZEM HYDROCHLORIDE [Concomitant]
     Active Substance: DILTIAZEM HYDROCHLORIDE
     Indication: Hypertension
  37. AMLODIPINE BESYLATE\ATORVASTATIN CALCIUM [Concomitant]
     Active Substance: AMLODIPINE BESYLATE\ATORVASTATIN CALCIUM
     Indication: Angina pectoris
     Dosage: 2 DF
     Route: 048
  38. AMLODIPINE BESYLATE\ATORVASTATIN CALCIUM [Concomitant]
     Active Substance: AMLODIPINE BESYLATE\ATORVASTATIN CALCIUM
     Indication: Hypertension
  39. AMLODIPINE BESYLATE\ATORVASTATIN CALCIUM [Concomitant]
     Active Substance: AMLODIPINE BESYLATE\ATORVASTATIN CALCIUM
     Indication: Lipids abnormal
  40. FAMOTIDINE [Concomitant]
     Active Substance: FAMOTIDINE
     Indication: Gastritis prophylaxis
     Dosage: 20 MG, QD
     Route: 048
  41. BUFFERIN A [ACETYLSALICYLIC ACID;ALUMINIUM GLYCINATE;MAGNESIUM CARBONA [Concomitant]
     Indication: Angina pectoris
     Dosage: 81 MG, QD
     Route: 048
  42. GLICLAZIDE [Concomitant]
     Active Substance: GLICLAZIDE
     Indication: Diabetes mellitus
     Dosage: 20 MG, BID
     Route: 048
  43. METFORMIN HYDROCHLORIDE\VILDAGLIPTIN [Concomitant]
     Active Substance: METFORMIN HYDROCHLORIDE\VILDAGLIPTIN
     Indication: Diabetes mellitus
     Dosage: UNK UNK, BID
     Route: 048
  44. FEXOFENADINE HYDROCHLORIDE [Concomitant]
     Active Substance: FEXOFENADINE HYDROCHLORIDE
     Indication: Pruritus
     Dosage: 60 MG, BID
     Route: 048
     Dates: start: 20211125

REACTIONS (3)
  - Interstitial lung disease [Fatal]
  - Acute kidney injury [Fatal]
  - Prescribed underdose [Unknown]

NARRATIVE: CASE EVENT DATE: 20220526
